FAERS Safety Report 24245362 (Version 1)
Quarter: 2024Q3

REPORT INFORMATION
  Report Type: Spontaneous
  Country: GB (occurrence: None)
  Receive Date: 20240824
  Receipt Date: 20240824
  Transmission Date: 20241017
  Serious: Yes (Other)
  Sender: ASTRAZENECA
  Company Number: 2024A187908

PATIENT
  Sex: Female

DRUGS (1)
  1. DAPAGLIFLOZIN [Suspect]
     Active Substance: DAPAGLIFLOZIN

REACTIONS (4)
  - Hypertension [Not Recovered/Not Resolved]
  - Amnesia [Recovering/Resolving]
  - Headache [Recovering/Resolving]
  - Nervousness [Not Recovered/Not Resolved]
